FAERS Safety Report 8433422-2 (Version None)
Quarter: 2012Q2

REPORT INFORMATION
  Report Type: 
  Country: None (occurrence: None)
  Receive Date: 20120613
  Receipt Date: 20120604
  Transmission Date: 20120825
  Serious: Yes (Death, Life-Threatening, Hospitalization, Disabling)
  Sender: FDA-Public Use
  Company Number: GB-SANOFI-AVENTIS-2011SA012596

PATIENT
  Age: 80 Year
  Sex: Male
  Weight: 86.4 kg

DRUGS (16)
  1. DOCETAXEL [Suspect]
     Route: 041
     Dates: start: 20101210
  2. OMEPRAZOLE [Concomitant]
     Route: 048
     Dates: end: 20110205
  3. MORPHINE SULFATE [Concomitant]
     Route: 048
     Dates: end: 20110205
  4. BLINDED THERAPY [Suspect]
     Route: 048
     Dates: start: 20110125
  5. INDORAMIN [Concomitant]
     Indication: HYPERTENSION
     Route: 048
     Dates: end: 20110205
  6. FERROUS FUMARATE [Concomitant]
     Route: 048
     Dates: end: 20110205
  7. PREDNISONE TAB [Suspect]
     Route: 065
     Dates: start: 20110125
  8. DOCETAXEL [Suspect]
     Indication: PROSTATE CANCER
     Route: 041
     Dates: start: 20101001
  9. ENOXAPARIN [Concomitant]
     Indication: THROMBOSIS PROPHYLAXIS
     Route: 065
  10. OMEPRAZOLE [Concomitant]
     Route: 048
     Dates: end: 20110205
  11. METOCLOPRAMIDE [Concomitant]
     Indication: ANTIEMETIC SUPPORTIVE CARE
     Route: 048
     Dates: end: 20110204
  12. DOCETAXEL [Suspect]
     Route: 041
     Dates: start: 20110125
  13. BLINDED THERAPY [Suspect]
     Indication: PROSTATE CANCER
     Route: 048
     Dates: start: 20101001
  14. BLINDED THERAPY [Suspect]
     Route: 048
     Dates: start: 20101210
  15. PREDNISONE TAB [Suspect]
     Indication: PROSTATE CANCER
     Route: 065
     Dates: start: 20101210
  16. PREDNISONE TAB [Suspect]
     Route: 065
     Dates: start: 20101001

REACTIONS (3)
  - PULMONARY EMBOLISM [None]
  - PROSTATE CANCER METASTATIC [None]
  - DYSPNOEA [None]
